FAERS Safety Report 7446013-7 (Version None)
Quarter: 2011Q2

REPORT INFORMATION
  Report Type: 
  Country: None (occurrence: None)
  Receive Date: 20110429
  Receipt Date: 20110418
  Transmission Date: 20111010
  Serious: Yes (Hospitalization)
  Sender: FDA-Public Use
  Company Number: US-JNJFOC-20110409309

PATIENT
  Sex: Female
  Weight: 86.18 kg

DRUGS (6)
  1. BIRTH CONTROL PILLS (UNSPECIFIED) [Concomitant]
  2. LEVOTHYROXINE SODIUM [Concomitant]
  3. HYZAAR [Concomitant]
  4. HYDROXYZINE [Concomitant]
  5. STELARA [Suspect]
     Indication: PSORIASIS
     Route: 058
  6. PROTONIX [Suspect]
     Indication: PRODUCT USED FOR UNKNOWN INDICATION

REACTIONS (2)
  - HYPERSENSITIVITY [None]
  - PSORIASIS [None]
